FAERS Safety Report 5292275-4 (Version None)
Quarter: 2007Q2

REPORT INFORMATION
  Report Type: 
  Country: None (occurrence: None)
  Receive Date: 20070410
  Receipt Date: 20070327
  Transmission Date: 20071010
  Serious: Yes (Other)
  Sender: FDA-Public Use
  Company Number: US-ROCHE-491900

PATIENT
  Age: 19 Year
  Sex: Female

DRUGS (3)
  1. ACCUTANE [Suspect]
     Route: 048
     Dates: start: 19971027, end: 19980215
  2. ACCUTANE [Suspect]
     Route: 048
     Dates: start: 19940615, end: 19940615
  3. ORAL CONTRACEPTIVE PILL [Concomitant]
     Dosage: FORM REPORTED AS PILL
     Dates: start: 19920615

REACTIONS (1)
  - ABORTION SPONTANEOUS [None]
